FAERS Safety Report 19481159 (Version 1)
Quarter: 2021Q3

REPORT INFORMATION
  Report Type: Report from Study
  Country: IN (occurrence: IN)
  Receive Date: 20210701
  Receipt Date: 20210701
  Transmission Date: 20211014
  Serious: Yes (Other)
  Sender: FDA-Public Use
  Company Number: IN-PFIZER INC-2021815096

PATIENT

DRUGS (5)
  1. OXALIPLATIN. [Suspect]
     Active Substance: OXALIPLATIN
     Indication: GALLBLADDER CANCER
     Dosage: 85 MG/M2, CYCLIC (OVER 2 HOURS)
     Route: 042
  2. GRANULOCYTE COLONY STIMULATING FACTOR [Suspect]
     Active Substance: GRANULOCYTE COLONY-STIMULATING FACTOR NOS
     Indication: GALLBLADDER CANCER
     Dosage: UNK (DAYS 4, 6, AND 8 WITH EACH CYCLE)
  3. 5?FU [Suspect]
     Active Substance: FLUOROURACIL
     Indication: GALLBLADDER CANCER
     Dosage: 2400 MG/M2, CYCLIC (OVER 46 HOURS, INFUSION OVER 46 HOURS REPEATED EVERY 2 WEEKS)
     Route: 042
  4. CALCIUM FOLINATE [Suspect]
     Active Substance: LEUCOVORIN CALCIUM
     Indication: GALLBLADDER CANCER
     Dosage: 400 MG/M2, CYCLIC (OVER 90 MINUTES ON DAY 1)
     Route: 042
  5. IRINOTECAN HCL [Suspect]
     Active Substance: IRINOTECAN HYDROCHLORIDE
     Indication: GALLBLADDER CANCER
     Dosage: 150 MG/M2, CYCLIC (OVER 90 MINUTES ON DAY 1)
     Route: 042

REACTIONS (1)
  - Hepatotoxicity [Unknown]
